FAERS Safety Report 5861403-1 (Version None)
Quarter: 2008Q3

REPORT INFORMATION
  Report Type: 
  Country: None (occurrence: None)
  Receive Date: 20080826
  Receipt Date: 20080814
  Transmission Date: 20090109
  Serious: Yes (Death)
  Sender: FDA-Public Use
  Company Number: 2008AL005202

PATIENT
  Sex: Female

DRUGS (1)
  1. DIGOXIN [Suspect]
     Dosage: PO
     Route: 048
     Dates: start: 20071101, end: 20080715

REACTIONS (5)
  - DIZZINESS [None]
  - EYE DISORDER [None]
  - HEADACHE [None]
  - MALAISE [None]
  - NAUSEA [None]
